FAERS Safety Report 24735523 (Version 2)
Quarter: 2025Q1

REPORT INFORMATION
  Report Type: Report from Study
  Country: GB (occurrence: GB)
  Receive Date: 20241216
  Receipt Date: 20250108
  Transmission Date: 20250409
  Serious: Yes (Other)
  Sender: UCB
  Company Number: GB-UCBSA-2024062191

PATIENT
  Sex: Female

DRUGS (1)
  1. CERTOLIZUMAB PEGOL [Suspect]
     Active Substance: CERTOLIZUMAB PEGOL
     Indication: Rheumatoid arthritis
     Route: 058
     Dates: start: 202410

REACTIONS (10)
  - Lower respiratory tract infection [Unknown]
  - Fine motor skill dysfunction [Unknown]
  - Asthenia [Unknown]
  - Nasopharyngitis [Unknown]
  - Cough [Unknown]
  - Influenza [Unknown]
  - Swelling face [Unknown]
  - Yellow skin [Unknown]
  - Eye colour change [Unknown]
  - Device difficult to use [Unknown]

NARRATIVE: CASE EVENT DATE: 20240101
